FAERS Safety Report 9284496 (Version 3)
Quarter: 2014Q2

REPORT INFORMATION
  Report Type: Report from Study
  Country: CA (occurrence: CA)
  Receive Date: 20130510
  Receipt Date: 20140417
  Transmission Date: 20141212
  Serious: Yes (Hospitalization, Other)
  Sender: FDA-Public Use
  Company Number: CA-ELI_LILLY_AND_COMPANY-CA201301000365

PATIENT
  Age: 64 Year
  Sex: Female

DRUGS (11)
  1. TERIPARATIDE [Suspect]
     Indication: OSTEOPOROSIS
     Dosage: 20 UNK, UNK
     Route: 058
     Dates: start: 20120319
  2. TERIPARATIDE [Suspect]
     Dosage: 20 UG, QD
     Route: 058
     Dates: end: 20130321
  3. TERIPARATIDE [Suspect]
     Dosage: 20 UG, QD
     Route: 058
     Dates: end: 20130418
  4. TERIPARATIDE [Suspect]
     Dosage: 20 UG, QD
     Route: 058
     Dates: start: 20130422, end: 20131210
  5. ENBREL [Suspect]
     Indication: PRODUCT USED FOR UNKNOWN INDICATION
     Dosage: 50 MG, WEEKLY (1/W)
     Route: 058
     Dates: end: 20131211
  6. ULTRAM [Concomitant]
  7. FENTANYL [Concomitant]
  8. VITAMIN D NOS [Concomitant]
  9. CALCIUM [Concomitant]
  10. CORTISONE [Concomitant]
  11. METHOTREXATE [Concomitant]
     Indication: SJOGREN^S SYNDROME

REACTIONS (16)
  - Septic arthritis streptococcal [Recovered/Resolved with Sequelae]
  - Septic shock [Recovered/Resolved with Sequelae]
  - Necrotising fasciitis [Recovered/Resolved with Sequelae]
  - Musculoskeletal chest pain [Not Recovered/Not Resolved]
  - Sinusitis [Recovering/Resolving]
  - Malaise [Recovering/Resolving]
  - Sinus congestion [Recovering/Resolving]
  - Sinus headache [Recovering/Resolving]
  - Tooth crowding [Not Recovered/Not Resolved]
  - Dyspnoea [Not Recovered/Not Resolved]
  - Cough [Recovering/Resolving]
  - Peripheral swelling [Recovered/Resolved]
  - Mass [Unknown]
  - Anaemia [Unknown]
  - Peripheral vascular disorder [Unknown]
  - Wound infection [Unknown]
